FAERS Safety Report 9439137 (Version 1)
Quarter: 2013Q3

REPORT INFORMATION
  Report Type: Report from Study
  Country: US (occurrence: US)
  Receive Date: 20130802
  Receipt Date: 20130802
  Transmission Date: 20140515
  Serious: Yes (Hospitalization, Other)
  Sender: FDA-Public Use
  Company Number: US-ABBOTT-13P-163-1125219-00

PATIENT
  Age: 49 Year
  Sex: Male
  Weight: 81.27 kg

DRUGS (4)
  1. HUMIRA [Suspect]
     Indication: CROHN^S DISEASE
     Dates: start: 2005, end: 201206
  2. HUMIRA [Suspect]
     Dates: start: 201206, end: 201210
  3. HUMIRA [Suspect]
     Dates: start: 20130724, end: 20130724
  4. UNNAMED MEDICATION [Concomitant]
     Indication: HYPERTENSION

REACTIONS (11)
  - Renal cyst [Not Recovered/Not Resolved]
  - Renal cyst [Not Recovered/Not Resolved]
  - Renal cancer stage I [Not Recovered/Not Resolved]
  - Abscess [Recovered/Resolved]
  - Abdominal pain [Not Recovered/Not Resolved]
  - Obstruction [Recovered/Resolved]
  - Crohn^s disease [Unknown]
  - Crohn^s disease [Not Recovered/Not Resolved]
  - Crohn^s disease [Not Recovered/Not Resolved]
  - Gastrointestinal disorder [Not Recovered/Not Resolved]
  - Blood sodium decreased [Unknown]
